FAERS Safety Report 18760580 (Version 2)
Quarter: 2021Q1

REPORT INFORMATION
  Report Type: Spontaneous
  Country: US (occurrence: US)
  Receive Date: 20210120
  Receipt Date: 20210131
  Transmission Date: 20210419
  Serious: No
  Sender: FDA-Public Use
  Company Number: US-MACLEODS PHARMACEUTICALS US LTD-MAC2021029838

PATIENT

DRUGS (2)
  1. TADALAFIL. [Suspect]
     Active Substance: TADALAFIL
     Indication: PRODUCT USED FOR UNKNOWN INDICATION
     Dosage: UNK
     Route: 065
     Dates: end: 2020
  2. ZYDUS BOSENTAN [Concomitant]
     Active Substance: BOSENTAN
     Indication: PULMONARY ARTERIAL HYPERTENSION
     Dosage: 1 DOSAGE FORM, BID
     Route: 048
     Dates: start: 20200213

REACTIONS (4)
  - Blood pressure increased [Unknown]
  - Stress [Unknown]
  - Dyspnoea [Unknown]
  - Peripheral swelling [Unknown]
